FAERS Safety Report 9193881 (Version 2)
Quarter: 2013Q2

REPORT INFORMATION
  Report Type: Spontaneous
  Country: US (occurrence: US)
  Receive Date: 20130327
  Receipt Date: 20130411
  Transmission Date: 20140414
  Serious: Yes (Other)
  Sender: FDA-Public Use
  Company Number: 2013SP000556

PATIENT
  Age: 65 Year
  Sex: Female

DRUGS (11)
  1. ZETONNA [Suspect]
     Indication: UPPER-AIRWAY COUGH SYNDROME
     Dates: start: 20130219, end: 20130219
  2. ZETONNA [Suspect]
     Indication: SEASONAL ALLERGY
     Dates: start: 20130219, end: 20130219
  3. PROAIR /00972202/ [Concomitant]
     Indication: ASTHMA
     Route: 055
  4. ADVAIR [Concomitant]
     Indication: SEASONAL ALLERGY
     Route: 055
  5. LIPITOR [Concomitant]
     Indication: PRODUCT USED FOR UNKNOWN INDICATION
  6. SERTRALINE [Concomitant]
     Indication: PRODUCT USED FOR UNKNOWN INDICATION
  7. CLARITIN /00917501/ [Concomitant]
     Indication: SEASONAL ALLERGY
  8. MULTIVITAMINS [Concomitant]
     Indication: PRODUCT USED FOR UNKNOWN INDICATION
  9. CALCIUM [Concomitant]
     Indication: PRODUCT USED FOR UNKNOWN INDICATION
  10. VITAMIN D /00107901/ [Concomitant]
     Indication: PRODUCT USED FOR UNKNOWN INDICATION
  11. VITAMIN B COMPLEX [Concomitant]
     Indication: PRODUCT USED FOR UNKNOWN INDICATION

REACTIONS (4)
  - Swelling face [Recovered/Resolved]
  - Oral pruritus [Recovered/Resolved]
  - Paraesthesia oral [Recovered/Resolved]
  - Hypersensitivity [Recovered/Resolved]
